FAERS Safety Report 5626916-6 (Version None)
Quarter: 2008Q1

REPORT INFORMATION
  Report Type: 
  Country: None (occurrence: None)
  Receive Date: 20080212
  Receipt Date: 20080130
  Transmission Date: 20080703
  Serious: Yes (Life-Threatening, Hospitalization)
  Sender: FDA-Public Use
  Company Number: 2006BI009469

PATIENT
  Age: 46 Year
  Sex: Female

DRUGS (1)
  1. AVONEX [Suspect]
     Indication: PROGRESSIVE RELAPSING MULTIPLE SCLEROSIS
     Dosage: 30 UG;QW;IM
     Route: 030
     Dates: start: 20030901, end: 20060101

REACTIONS (8)
  - ACUTE HEPATIC FAILURE [None]
  - COMA [None]
  - CONFUSIONAL STATE [None]
  - GOITRE [None]
  - HEPATIC NECROSIS [None]
  - HEPATITIS FULMINANT [None]
  - LIVER TRANSPLANT [None]
  - THYROIDITIS CHRONIC [None]
